FAERS Safety Report 8212026-0 (Version None)
Quarter: 2012Q1

REPORT INFORMATION
  Report Type: 
  Country: None (occurrence: None)
  Receive Date: 20120315
  Receipt Date: 20120313
  Transmission Date: 20120608
  Serious: Yes (Other)
  Sender: FDA-Public Use
  Company Number: US-PFIZER INC-2012066550

PATIENT
  Sex: Female
  Weight: 69.841 kg

DRUGS (3)
  1. CYTOTEC [Suspect]
     Indication: ABORTION INDUCED
     Dosage: 600 UG, 1X/DAY
     Route: 067
     Dates: start: 20120309, end: 20120310
  2. CYTOTEC [Suspect]
     Indication: OFF LABEL USE
  3. CYTOTEC [Suspect]

REACTIONS (1)
  - HAEMORRHAGE [None]
